FAERS Safety Report 6430026-8 (Version None)
Quarter: 2009Q4

REPORT INFORMATION
  Report Type: 
  Country: None (occurrence: None)
  Receive Date: 20091104
  Receipt Date: 20091104
  Transmission Date: 20100525
  Serious: No
  Sender: FDA-Public Use
  Company Number: None

PATIENT
  Sex: Male
  Weight: 106.5953 kg

DRUGS (1)
  1. COMTAN [Suspect]
     Indication: PARKINSON'S DISEASE
     Dosage: 1 -CONCURRENTLY WITH CARB/LEV- 4 TIMES DAILY PO
     Route: 048
     Dates: start: 20071214, end: 20090406

REACTIONS (3)
  - DEVICE BREAKAGE [None]
  - ECONOMIC PROBLEM [None]
  - TOOTH FRACTURE [None]
